FAERS Safety Report 10818656 (Version 2)
Quarter: 2015Q2

REPORT INFORMATION
  Report Type: Spontaneous
  Country: US (occurrence: US)
  Receive Date: 20150218
  Receipt Date: 20150415
  Transmission Date: 20150821
  Serious: No
  Sender: FDA-Public Use
  Company Number: US-PFIZER INC-2015060740

PATIENT
  Age: 44 Year
  Sex: Female
  Weight: 77 kg

DRUGS (1)
  1. CLEOCIN [Suspect]
     Active Substance: CLINDAMYCIN PHOSPHATE
     Indication: INFECTION
     Dosage: 100 MG, 1X/DAY
     Route: 067
     Dates: start: 201502

REACTIONS (6)
  - Skin burning sensation [Unknown]
  - Drug ineffective [Unknown]
  - Trismus [Unknown]
  - Rash [Unknown]
  - Erythema [Unknown]
  - Eye oedema [Unknown]

NARRATIVE: CASE EVENT DATE: 201502
